FAERS Safety Report 12134839 (Version 6)
Quarter: 2016Q2

REPORT INFORMATION
  Report Type: Report from Study
  Country: ES (occurrence: ES)
  Receive Date: 20160301
  Receipt Date: 20160429
  Transmission Date: 20160815
  Serious: Yes (Death, Hospitalization, Disabling)
  Sender: FDA-Public Use
  Company Number: ES-ABBVIE-16P-144-1568347-00

PATIENT
  Age: 75 Year
  Sex: Female

DRUGS (1)
  1. DUODOPA [Suspect]
     Active Substance: CARBIDOPA\LEVODOPA
     Indication: PARKINSON^S DISEASE
     Route: 050
     Dates: start: 201403

REACTIONS (13)
  - Hallucination [Unknown]
  - Death [Fatal]
  - Fluid intake reduced [Unknown]
  - General physical health deterioration [Unknown]
  - On and off phenomenon [Unknown]
  - Sepsis [Unknown]
  - Terminal state [Not Recovered/Not Resolved]
  - Stupor [Unknown]
  - Hypophagia [Unknown]
  - Disorientation [Unknown]
  - Arrhythmia [Unknown]
  - General physical health deterioration [Unknown]
  - Mitral valve incompetence [Unknown]

NARRATIVE: CASE EVENT DATE: 201602
